FAERS Safety Report 12326359 (Version 1)
Quarter: 2016Q2

REPORT INFORMATION
  Report Type: Other
  Country: ES (occurrence: ES)
  Receive Date: 20160503
  Receipt Date: 20160503
  Transmission Date: 20160815
  Serious: Yes (Hospitalization)
  Sender: FDA-Public Use
  Company Number: ES-APOTEX-2016AP008227

PATIENT
  Age: 80 Year
  Sex: Female

DRUGS (6)
  1. SINTROM [Interacting]
     Active Substance: ACENOCOUMAROL
     Indication: ATRIAL FIBRILLATION
     Dosage: 4 MG, UNK
     Route: 048
     Dates: start: 20150121, end: 20150220
  2. PAROXETINE. [Suspect]
     Active Substance: PAROXETINE
     Indication: DEPRESSION
     Dosage: 20 MG, QD
     Route: 048
     Dates: start: 20150121
  3. TORASEMIDA [Concomitant]
     Indication: CARDIAC FAILURE CONGESTIVE
     Dosage: 5 MG, QD (1-0-0)
     Route: 048
     Dates: start: 20150121
  4. PANTOPRAZOL [Concomitant]
     Active Substance: PANTOPRAZOLE SODIUM
     Indication: GASTRIC ULCER
     Dosage: 40 MG, QD (1-0-0)
     Route: 048
     Dates: start: 2004
  5. ENALAPRIL [Concomitant]
     Active Substance: ENALAPRIL
     Indication: HYPERTENSION
     Dosage: 20 MG, QD (1-0-0)
     Route: 048
     Dates: start: 20150121
  6. NOLOTIL                            /00473101/ [Concomitant]
     Active Substance: METAMIZOLE
     Indication: PAIN
     Dosage: 575 MG, TID (1-1-1)
     Route: 048
     Dates: start: 20150121

REACTIONS (2)
  - Haematuria [Recovered/Resolved]
  - Hypocoagulable state [Recovered/Resolved]

NARRATIVE: CASE EVENT DATE: 20150220
